FAERS Safety Report 9818307 (Version 1)
Quarter: 2014Q1

REPORT INFORMATION
  Report Type: Spontaneous
  Country: US (occurrence: None)
  Receive Date: 20140113
  Receipt Date: 20140113
  Transmission Date: 20141002
  Serious: No
  Sender: FDA-Public Use
  Company Number: None

PATIENT
  Age: 54 Year
  Sex: Female

DRUGS (1)
  1. HUMIRA 40 MG ABBVIE [Suspect]
     Indication: RHEUMATOID ARTHRITIS
     Dosage: 40 MG QOW SQ
     Route: 058
     Dates: start: 20130725, end: 20140102

REACTIONS (6)
  - Abscess [None]
  - Oropharyngeal pain [None]
  - Weight decreased [None]
  - Paraesthesia [None]
  - Musculoskeletal pain [None]
  - Surgery [None]
